FAERS Safety Report 13319634 (Version 2)
Quarter: 2017Q1

REPORT INFORMATION
  Report Type: Report from Study
  Country: TW (occurrence: TW)
  Receive Date: 20170310
  Receipt Date: 20170323
  Transmission Date: 20170428
  Serious: Yes (Other)
  Sender: FDA-Public Use
  Company Number: TW-BIOGEN-2017BI00369202

PATIENT
  Age: 41 Year
  Sex: Male

DRUGS (4)
  1. TYSABRI [Suspect]
     Active Substance: NATALIZUMAB
     Indication: MULTIPLE SCLEROSIS
     Route: 065
  2. STROCAIN [Concomitant]
     Active Substance: OXETHAZAINE
     Indication: PROPHYLAXIS AGAINST GASTROINTESTINAL ULCER
     Route: 048
     Dates: start: 20170104, end: 20170204
  3. IBUPROFEN. [Concomitant]
     Active Substance: IBUPROFEN
     Indication: PAIN
     Route: 065
     Dates: start: 20170201, end: 20170204
  4. PK-MERZ [Concomitant]
     Active Substance: AMANTADINE
     Indication: ATAXIA
     Route: 048
     Dates: start: 20160413

REACTIONS (2)
  - Pneumonia pneumococcal [Recovered/Resolved]
  - Empyema [Recovered/Resolved]

NARRATIVE: CASE EVENT DATE: 20170204
